FAERS Safety Report 8382954 (Version 2)
Quarter: 2013Q2

REPORT INFORMATION
  Report Type: Spontaneous
  Country: US (occurrence: None)
  Receive Date: 20111221
  Receipt Date: 20121227
  Transmission Date: 20140414
  Serious: Yes (Other)
  Sender: FDA-Public Use
  Company Number: PHHY2010US74112

PATIENT
  Sex: Male
  Weight: 24.7 kg

DRUGS (1)
  1. EXJADE [Suspect]
     Indication: SICKLE CELL ANAEMIA
     Dosage: 750 MG/DAY, ORAL
     Route: 048
     Dates: start: 20090804, end: 20101005

REACTIONS (2)
  - SICKLE CELL ANAEMIA WITH CRISIS [None]
  - Liver function test abnormal [None]
